FAERS Safety Report 7476387-2 (Version None)
Quarter: 2011Q2

REPORT INFORMATION
  Report Type: 
  Country: None (occurrence: None)
  Receive Date: 20110512
  Receipt Date: 20110505
  Transmission Date: 20111010
  Serious: Yes (Other)
  Sender: FDA-Public Use
  Company Number: B0717436A

PATIENT
  Age: 29 Year
  Sex: Female

DRUGS (4)
  1. CYCLIZINE [Concomitant]
  2. PROCHLORPERAZINE TAB [Concomitant]
  3. ZOFRAN [Suspect]
     Route: 048
     Dates: start: 20110310, end: 20110427
  4. ZOFRAN [Suspect]
     Indication: VOMITING
     Route: 042
     Dates: start: 20110308, end: 20110310

REACTIONS (4)
  - CONSTIPATION [None]
  - DRUG EXPOSURE DURING PREGNANCY [None]
  - ABORTION SPONTANEOUS [None]
  - HEADACHE [None]
